FAERS Safety Report 20227670 (Version 1)
Quarter: 2021Q4

REPORT INFORMATION
  Report Type: Other
  Country: None (occurrence: FR)
  Receive Date: 20211224
  Receipt Date: 20211224
  Transmission Date: 20220303
  Serious: Yes (Hospitalization)
  Sender: FDA-Public Use
  Company Number: US-MLMSERVICE20211028-3190766-1

PATIENT
  Age: 21 Year
  Sex: Female

DRUGS (1)
  1. NITROUS OXIDE [Suspect]
     Active Substance: NITROUS OXIDE
     Indication: Substance use
     Route: 055

REACTIONS (2)
  - Gait disturbance [Recovering/Resolving]
  - Paraesthesia [Recovering/Resolving]
